FAERS Safety Report 21851315 (Version 2)
Quarter: 2023Q1

REPORT INFORMATION
  Report Type: Spontaneous
  Country: GB (occurrence: GB)
  Receive Date: 20230112
  Receipt Date: 20230125
  Transmission Date: 20230418
  Serious: Yes (Other)
  Sender: FDA-Public Use
  Company Number: GB-CELLTRION INC.-2023GB000340

PATIENT

DRUGS (1)
  1. INFLIXIMAB [Suspect]
     Active Substance: INFLIXIMAB
     Indication: Crohn^s disease
     Dosage: 120 MILLIGRAM, Q2WEEKS
     Route: 058
     Dates: start: 20221025

REACTIONS (4)
  - Suspected COVID-19 [Recovering/Resolving]
  - Oral herpes [Recovering/Resolving]
  - Malaise [Recovering/Resolving]
  - Intentional dose omission [Recovering/Resolving]
